FAERS Safety Report 5424061-6 (Version None)
Quarter: 2007Q3

REPORT INFORMATION
  Report Type: 
  Country: None (occurrence: None)
  Receive Date: 20070727
  Receipt Date: 20060425
  Transmission Date: 20080115
  Serious: Yes (Other)
  Sender: FDA-Public Use
  Company Number: THYM-11151

PATIENT
  Age: 44 Year
  Sex: Male

DRUGS (7)
  1. THYMOGLOBULIN [Suspect]
     Indication: RENAL TRANSPLANT
     Dosage: 2.5 MG/KG ONCE IV
     Route: 042
     Dates: start: 20050405, end: 20050405
  2. THYMOGLOBULIN [Suspect]
     Indication: RENAL TRANSPLANT
     Dosage: 1.25 MG/KG QD IV
     Route: 042
     Dates: start: 20050406, end: 20050408
  3. RAPAMUNE [Suspect]
     Indication: IMMUNOSUPPRESSION
     Dosage: 15 MG DAILY
     Dates: start: 20050405
  4. METHYLPREDNISOLONE [Concomitant]
  5. PREDNISONE [Concomitant]
  6. CELLCEPT [Concomitant]
  7. POLARAMINE [Concomitant]

REACTIONS (2)
  - KIDNEY TRANSPLANT REJECTION [None]
  - PROTEINURIA [None]
